FAERS Safety Report 16755705 (Version 2)
Quarter: 2019Q3

REPORT INFORMATION
  Report Type: Spontaneous
  Country: JP (occurrence: JP)
  Receive Date: 20190829
  Receipt Date: 20190918
  Transmission Date: 20191005
  Serious: Yes (Death)
  Sender: FDA-Public Use
  Company Number: JP-ACTELION-A-CH2019-194864

PATIENT
  Age: 59 Year
  Sex: Female

DRUGS (2)
  1. UPTRAVI [Concomitant]
     Active Substance: SELEXIPAG
  2. OPSUMIT [Suspect]
     Active Substance: MACITENTAN
     Indication: PULMONARY HYPERTENSION
     Dosage: 10 MG, QD
     Route: 048
     Dates: start: 20190318

REACTIONS (2)
  - Pulmonary veno-occlusive disease [Fatal]
  - Concomitant disease aggravated [Fatal]

NARRATIVE: CASE EVENT DATE: 20190801
